FAERS Safety Report 18105069 (Version 1)
Quarter: 2020Q3

REPORT INFORMATION
  Report Type: Spontaneous
  Country: US (occurrence: US)
  Receive Date: 20200803
  Receipt Date: 20200803
  Transmission Date: 20201103
  Serious: Yes (Hospitalization)
  Sender: FDA-Public Use
  Company Number: US-ALLERGAN-2027963US

PATIENT
  Sex: Female
  Weight: 66.6 kg

DRUGS (1)
  1. SUCRALFATE UNK [Suspect]
     Active Substance: SUCRALFATE
     Indication: HIATUS HERNIA
     Dosage: 10 ML, Q8HR
     Route: 048

REACTIONS (5)
  - Haemoglobin decreased [Recovered/Resolved]
  - Leukopenia [Recovered/Resolved]
  - Red blood cell count decreased [Recovered/Resolved]
  - Faeces discoloured [Recovered/Resolved]
  - Off label use [Unknown]

NARRATIVE: CASE EVENT DATE: 2020
